FAERS Safety Report 7733800-0 (Version None)
Quarter: 2011Q3

REPORT INFORMATION
  Report Type: 
  Country: None (occurrence: None)
  Receive Date: 20110907
  Receipt Date: 20110830
  Transmission Date: 20111222
  Serious: Yes (Hospitalization)
  Sender: FDA-Public Use
  Company Number: PHEH2011US02958

PATIENT
  Age: 47 Year
  Sex: Male
  Weight: 61.678 kg

DRUGS (1)
  1. TOBI [Suspect]
     Dosage: 300 MG, EVERY 12 HOURS FOR 28 DAYS
     Dates: start: 20110602

REACTIONS (1)
  - UPPER RESPIRATORY TRACT INFECTION [None]
